FAERS Safety Report 9604246 (Version 1)
Quarter: 2013Q4

REPORT INFORMATION
  Report Type: Spontaneous
  Country: CN (occurrence: CN)
  Receive Date: 20131008
  Receipt Date: 20131008
  Transmission Date: 20140711
  Serious: Yes (Other)
  Sender: FDA-Public Use
  Company Number: CN-MYLANLABS-2013S1021605

PATIENT
  Age: 98 Year
  Sex: Male

DRUGS (3)
  1. LINEZOLID [Suspect]
     Indication: PNEUMONIA
     Route: 042
  2. CITALOPRAM [Interacting]
     Indication: DEPRESSION
     Route: 065
  3. AMIODARONE [Interacting]
     Indication: ATRIAL FIBRILLATION
     Route: 065

REACTIONS (2)
  - Serotonin syndrome [Recovered/Resolved]
  - Drug interaction [Recovered/Resolved]
